FAERS Safety Report 5753828-X (Version None)
Quarter: 2008Q2

REPORT INFORMATION
  Report Type: 
  Country: None (occurrence: None)
  Receive Date: 20080530
  Receipt Date: 20080521
  Transmission Date: 20081010
  Serious: Yes (Other)
  Sender: FDA-Public Use
  Company Number: US-MERCK-0804USA02571

PATIENT
  Age: 5 Year
  Sex: Female
  Weight: 23 kg

DRUGS (3)
  1. SINGULAIR [Suspect]
     Indication: BRONCHIAL HYPERREACTIVITY
     Route: 048
  2. SINGULAIR [Suspect]
     Indication: OBSTRUCTIVE AIRWAYS DISORDER
     Route: 048
  3. CORTICOSTEROIDS (UNSPECIFIED) [Concomitant]
     Route: 065

REACTIONS (2)
  - ABNORMAL BEHAVIOUR [None]
  - HOMICIDAL IDEATION [None]
